FAERS Safety Report 6239435 (Version 2)
Quarter: 2013Q4

REPORT INFORMATION
  Report Type: Spontaneous
  Country: US (occurrence: None)
  Receive Date: 20070201
  Receipt Date: 20131104
  Transmission Date: 20140711
  Serious: Yes (Death, Other)
  Sender: FDA-Public Use
  Company Number: 2007US-05528

PATIENT
  Age: 3 Month
  Sex: Male

DRUGS (3)
  1. PSEUDOEPHEDRINE HYDROCHLORIDE [Suspect]
     Indication: NASAL CONGESTION
     Dosage: ORAL
     Route: 048
  2. DOXYLAMINE [Concomitant]
  3. ACETAMINOPHEN/PSEUDOEPHEDRINE HCI/DEXTROMETHORPHAN HBR (DEXTROMETHORPHAN HYDROBROMIDE 10 MG, PSEUDOE [Concomitant]

REACTIONS (3)
  - Encephalopathy [None]
  - Tibia fracture [None]
  - Toxicity to various agents [None]
